FAERS Safety Report 11012871 (Version 2)
Quarter: 2015Q2

REPORT INFORMATION
  Report Type: Spontaneous
  Country: US (occurrence: US)
  Receive Date: 20150411
  Receipt Date: 20150525
  Transmission Date: 20150821
  Serious: Yes (Other)
  Sender: FDA-Public Use
  Company Number: US-JNJFOC-20140613790

PATIENT
  Age: 53 Year
  Sex: Female

DRUGS (1)
  1. REMICADE [Suspect]
     Active Substance: INFLIXIMAB
     Indication: CROHN^S DISEASE
     Dosage: THE PATIENT HAD 4 INFLIXIMAB INFUSIONS
     Route: 042

REACTIONS (2)
  - Cardiac failure congestive [Unknown]
  - Hypochondriasis [Unknown]

NARRATIVE: CASE EVENT DATE: 2014
